FAERS Safety Report 5406977-X (Version None)
Quarter: 2007Q3

REPORT INFORMATION
  Report Type: 
  Country: None (occurrence: None)
  Receive Date: 20070803
  Receipt Date: 20070803
  Transmission Date: 20080115
  Serious: Yes (Hospitalization)
  Sender: FDA-Public Use
  Company Number: None

PATIENT
  Age: 14 Year
  Sex: Male
  Weight: 66.2252 kg

DRUGS (1)
  1. NAPROXEN [Suspect]
     Indication: PAIN IN EXTREMITY
     Dosage: 1 TABLET ONCE PO
     Route: 048
     Dates: start: 20070801, end: 20070801

REACTIONS (6)
  - COUGH [None]
  - DRUG HYPERSENSITIVITY [None]
  - DYSPNOEA [None]
  - HYPERSENSITIVITY [None]
  - RASH [None]
  - SWELLING [None]
